FAERS Safety Report 17242110 (Version 1)
Quarter: 2019Q4

REPORT INFORMATION
  Report Type: Spontaneous
  Country: US (occurrence: US)
  Receive Date: 20191212
  Receipt Date: 20191212
  Transmission Date: 20200122
  Serious: No
  Sender: FDA-Public Use
  Company Number: None

PATIENT
  Sex: Female

DRUGS (1)
  1. AFINITOR [Suspect]
     Active Substance: EVEROLIMUS
     Indication: MALIGNANT NIPPLE NEOPLASM FEMALE
     Dates: start: 201908, end: 201911

REACTIONS (2)
  - Drug ineffective [None]
  - Therapy cessation [None]
